FAERS Safety Report 18688294 (Version 1)
Quarter: 2020Q4

REPORT INFORMATION
  Report Type: Spontaneous
  Country: GB (occurrence: GB)
  Receive Date: 20201231
  Receipt Date: 20201231
  Transmission Date: 20210114
  Serious: Yes (Life-Threatening, Hospitalization, Other)
  Sender: FDA-Public Use
  Company Number: GB-SA-2020SA372785

PATIENT

DRUGS (7)
  1. CYCLOPHOSPHAMIDE. [Suspect]
     Active Substance: CYCLOPHOSPHAMIDE
     Dosage: UNK
     Dates: start: 201502
  2. FLUDARABINE PHOSPHATE. [Suspect]
     Active Substance: FLUDARABINE PHOSPHATE
     Indication: APLASTIC ANAEMIA
     Dosage: UNK
     Dates: start: 201407
  3. ANTI-THYMOCYTE GLOBULIN (RABBIT) NOS [Suspect]
     Active Substance: LAPINE T-LYMPHOCYTE IMMUNE GLOBULIN
     Indication: BONE MARROW CONDITIONING REGIMEN
     Dosage: UNK
     Dates: start: 201409
  4. FLUDARABINE PHOSPHATE. [Suspect]
     Active Substance: FLUDARABINE PHOSPHATE
     Indication: BONE MARROW CONDITIONING REGIMEN
     Dosage: UNK
     Dates: start: 201409
  5. FLUDARABINE PHOSPHATE. [Suspect]
     Active Substance: FLUDARABINE PHOSPHATE
     Dosage: UNK
     Dates: start: 201502
  6. CYCLOPHOSPHAMIDE. [Suspect]
     Active Substance: CYCLOPHOSPHAMIDE
     Indication: APLASTIC ANAEMIA
     Dosage: UNK
     Dates: start: 201407
  7. CAMPATH [Suspect]
     Active Substance: ALEMTUZUMAB
     Indication: APLASTIC ANAEMIA
     Dosage: UNK
     Dates: start: 201407

REACTIONS (4)
  - Infection [Unknown]
  - Sepsis [Unknown]
  - Off label use [Unknown]
  - Cytomegalovirus infection reactivation [Recovering/Resolving]

NARRATIVE: CASE EVENT DATE: 2014
